FAERS Safety Report 20804652 (Version 2)
Quarter: 2022Q3

REPORT INFORMATION
  Report Type: Spontaneous
  Country: NG (occurrence: NG)
  Receive Date: 20220509
  Receipt Date: 20220707
  Transmission Date: 20221027
  Serious: Yes (Death)
  Sender: FDA-Public Use
  Company Number: NG-PFIZER INC-202200661463

PATIENT
  Age: 48 Year
  Sex: Male

DRUGS (1)
  1. MEROPENEM [Suspect]
     Active Substance: MEROPENEM
     Dosage: 1 G
     Route: 042
     Dates: start: 20220425, end: 202204

REACTIONS (2)
  - Cardio-respiratory arrest [Fatal]
  - White blood cell count increased [Fatal]
